FAERS Safety Report 5018721-9 (Version None)
Quarter: 2006Q2

REPORT INFORMATION
  Report Type: 
  Country: None (occurrence: None)
  Receive Date: 20060606
  Receipt Date: 20060120
  Transmission Date: 20061013
  Serious: Yes (Hospitalization)
  Sender: FDA-Public Use
  Company Number: CA-ROCHE-433088

PATIENT
  Age: 52 Year
  Sex: Female
  Weight: 62 kg

DRUGS (15)
  1. MYCOPHENOLATE MOFETIL [Suspect]
     Dosage: LOADING DOSE
     Route: 048
     Dates: start: 20051215, end: 20051218
  2. MYCOPHENOLATE MOFETIL [Suspect]
     Route: 048
     Dates: start: 20051219, end: 20060104
  3. MYCOPHENOLATE MOFETIL [Suspect]
     Dosage: REDUCED DUE TO NEUTROPENIA
     Route: 048
     Dates: start: 20060105, end: 20060120
  4. MYCOPHENOLATE MOFETIL [Suspect]
     Dosage: REDUCED DUE TO ANAEMIA
     Route: 048
     Dates: start: 20060121, end: 20060126
  5. MYCOPHENOLATE MOFETIL [Suspect]
     Dosage: REDUCED DUE TO PROBABLE PARVOVIRUS B19 INFECTION
     Route: 048
     Dates: start: 20060127
  6. TACROLIMUS [Suspect]
     Route: 065
     Dates: start: 20051214
  7. METHYLPREDNISOLONE [Suspect]
     Route: 065
  8. SIMULECT [Suspect]
     Route: 065
  9. RANITIDINE [Concomitant]
     Dates: start: 20051216, end: 20060117
  10. SEPTRA SS [Concomitant]
     Route: 065
  11. ADALAT [Concomitant]
     Dates: start: 20060103
  12. CALCIUM CARBONATE [Concomitant]
     Dates: start: 20051215
  13. CENTRUM FORTE [Concomitant]
     Dates: start: 20051215
  14. ZINC [Concomitant]
     Dates: start: 20051228
  15. TRIFEREXX [Concomitant]
     Dates: start: 20060114

REACTIONS (4)
  - ANAEMIA [None]
  - ERYTHEMA INFECTIOSUM [None]
  - NEUTROPENIA [None]
  - PYREXIA [None]
